FAERS Safety Report 7646811-0 (Version None)
Quarter: 2011Q3

REPORT INFORMATION
  Report Type: 
  Country: None (occurrence: None)
  Receive Date: 20110801
  Receipt Date: 20110729
  Transmission Date: 20111222
  Serious: Yes (Hospitalization, Other)
  Sender: FDA-Public Use
  Company Number: US-SANOFI-AVENTIS-2011SA009917

PATIENT
  Age: 82 Year
  Sex: Female

DRUGS (5)
  1. ASPIRIN [Concomitant]
  2. ITAVASTATIN [Concomitant]
  3. DABIGATRAN ETEXILATE [Suspect]
     Indication: ANTICOAGULANT THERAPY
     Route: 065
     Dates: start: 20101201
  4. MULTAQ [Suspect]
     Indication: ATRIAL FIBRILLATION
     Route: 048
     Dates: start: 20101001
  5. COZAAR [Concomitant]

REACTIONS (3)
  - HAEMORRHAGE [None]
  - ATRIAL FIBRILLATION [None]
  - FATIGUE [None]
